FAERS Safety Report 17713505 (Version 1)
Quarter: 2020Q2

REPORT INFORMATION
  Report Type: Spontaneous
  Country: US (occurrence: US)
  Receive Date: 20200427
  Receipt Date: 20200427
  Transmission Date: 20200714
  Serious: No
  Sender: FDA-Public Use
  Company Number: US-ROCHE-2554349

PATIENT
  Age: 10 Year
  Sex: Male

DRUGS (1)
  1. XOFLUZA [Suspect]
     Active Substance: BALOXAVIR MARBOXIL
     Indication: PRODUCT USED FOR UNKNOWN INDICATION
     Dosage: XOFLUZA 20MG 2 1 DAYS SUPPLY
     Route: 065

REACTIONS (3)
  - Intentional product use issue [Unknown]
  - No adverse event [Unknown]
  - Off label use [Unknown]
